FAERS Safety Report 5180909-4 (Version None)
Quarter: 2006Q4

REPORT INFORMATION
  Report Type: 
  Country: None (occurrence: None)
  Receive Date: 20061219
  Receipt Date: 20060821
  Transmission Date: 20070319
  Serious: Yes (Hospitalization)
  Sender: FDA-Public Use
  Company Number: JP-ABBOTT-06P-087-0341587-00

PATIENT
  Sex: Female
  Weight: 35 kg

DRUGS (4)
  1. KALETRA [Suspect]
     Indication: SYSTEMIC ANTIVIRAL TREATMENT
     Dosage: NOT REPORTED
     Route: 048
     Dates: start: 20060606, end: 20060629
  2. EMTRICITABIN/TENOFOVIR [Suspect]
     Indication: SYSTEMIC ANTIVIRAL TREATMENT
     Route: 048
     Dates: start: 20060606, end: 20060629
  3. EMTRICITABIN/TENOFOVIR [Suspect]
     Dosage: NOT REPORTED
     Dates: start: 20050601, end: 20060606
  4. EFAVIRENZ [Concomitant]
     Indication: SYSTEMIC ANTIVIRAL TREATMENT
     Dates: end: 20060601

REACTIONS (2)
  - ANOREXIA [None]
  - RENAL FAILURE ACUTE [None]
